FAERS Safety Report 8551193-6 (Version None)
Quarter: 2012Q3

REPORT INFORMATION
  Report Type: 
  Country: None (occurrence: None)
  Receive Date: 20120730
  Receipt Date: 20120720
  Transmission Date: 20120928
  Serious: Yes (Hospitalization, Other)
  Sender: FDA-Public Use
  Company Number: ES-JNJFOC-20120704670

PATIENT
  Sex: Male
  Weight: 70 kg

DRUGS (3)
  1. AZATHIOPRINE [Concomitant]
     Indication: COLITIS ULCERATIVE
     Dates: start: 20091101
  2. REMICADE [Suspect]
     Indication: COLITIS ULCERATIVE
     Route: 042
     Dates: end: 20110323
  3. PREDNISONE [Concomitant]
     Indication: COLITIS ULCERATIVE
     Dates: start: 20110401

REACTIONS (3)
  - COLECTOMY [None]
  - SEPSIS [None]
  - ANASTOMOTIC LEAK [None]
